FAERS Safety Report 24375600 (Version 1)
Quarter: 2024Q3

REPORT INFORMATION
  Report Type: Spontaneous
  Country: US (occurrence: US)
  Receive Date: 20240928
  Receipt Date: 20240928
  Transmission Date: 20241016
  Serious: No
  Sender: SANOFI AVENTIS
  Company Number: US-SA-2024SA272987

PATIENT
  Age: 74 Year
  Sex: Female

DRUGS (3)
  1. DUPIXENT [Suspect]
     Active Substance: DUPILUMAB
     Dosage: 300 MG, QOW
     Route: 058
  2. MALARIA VACCINE [Concomitant]
     Dosage: UNK
  3. TYPHOID VACCINE [Concomitant]
     Active Substance: TYPHOID VACCINE
     Dosage: UNK
     Dates: start: 20240911

REACTIONS (2)
  - Eczema [Unknown]
  - Erythema [Unknown]

NARRATIVE: CASE EVENT DATE: 20240101
